FAERS Safety Report 23405425 (Version 1)
Quarter: 2024Q1

REPORT INFORMATION
  Report Type: Spontaneous
  Country: US (occurrence: None)
  Receive Date: 20240112
  Receipt Date: 20240112
  Transmission Date: 20240410
  Serious: Yes (Disabling)
  Sender: FDA-Public Use
  Company Number: None

PATIENT
  Age: 89 Year
  Sex: Male

DRUGS (1)
  1. WARFARIN [Suspect]
     Active Substance: WARFARIN

REACTIONS (10)
  - Subdural haemorrhage [None]
  - Road traffic accident [None]
  - Cerebral ischaemia [None]
  - Thalamic infarction [None]
  - Haemoglobin decreased [None]
  - International normalised ratio increased [None]
  - Subdural haematoma [None]
  - Therapy cessation [None]
  - Therapeutic embolisation [None]
  - Thrombocytopenia [None]
